FAERS Safety Report 10448434 (Version 1)
Quarter: 2014Q3

REPORT INFORMATION
  Report Type: Spontaneous
  Country: JP (occurrence: JP)
  Receive Date: 20140911
  Receipt Date: 20140911
  Transmission Date: 20150326
  Serious: Yes (Hospitalization)
  Sender: FDA-Public Use
  Company Number: PHHY2012JP136088

PATIENT
  Sex: Female

DRUGS (5)
  1. PHENOBARBITAL. [Concomitant]
     Active Substance: PHENOBARBITAL
     Dosage: UNK
  2. TASIGNA [Suspect]
     Active Substance: NILOTINIB
     Indication: CHRONIC MYELOID LEUKAEMIA
     Dosage: 400 MG
  3. TASIGNA [Suspect]
     Active Substance: NILOTINIB
     Dosage: 400 MG
  4. CARVEDILOL. [Concomitant]
     Active Substance: CARVEDILOL
     Dosage: UNK
  5. TASIGNA [Suspect]
     Active Substance: NILOTINIB
     Dosage: 300 MG

REACTIONS (4)
  - Electrocardiogram QT interval [Unknown]
  - Pancytopenia [Unknown]
  - Pyrexia [Unknown]
  - Anaemia [Unknown]
